FAERS Safety Report 12838265 (Version 1)
Quarter: 2016Q4

REPORT INFORMATION
  Report Type: Spontaneous
  Country: US (occurrence: US)
  Receive Date: 20161012
  Receipt Date: 20161012
  Transmission Date: 20170207
  Serious: No
  Sender: FDA-Public Use
  Company Number: US-MYLANLABS-2016M1030491

PATIENT
  Age: 65 Year
  Sex: Female

DRUGS (4)
  1. ESTRADIOL. [Suspect]
     Active Substance: ESTRADIOL
     Dosage: 1 DF, BIMONTHLY
     Route: 062
  2. ESTRADIOL. [Suspect]
     Active Substance: ESTRADIOL
     Indication: HORMONE THERAPY
     Dosage: 1 DF, BIWEEKLY
     Route: 062
     Dates: start: 20160305
  3. ESTRADIOL. [Suspect]
     Active Substance: ESTRADIOL
     Dosage: 1 DF, QW
     Route: 062
     Dates: start: 20160701
  4. PROGESTERONE. [Concomitant]
     Active Substance: PROGESTERONE
     Dosage: NOT PROVIDED

REACTIONS (4)
  - Myalgia [Recovered/Resolved]
  - Dyspepsia [Not Recovered/Not Resolved]
  - Abdominal discomfort [Not Recovered/Not Resolved]
  - Wrong technique in product usage process [Not Recovered/Not Resolved]

NARRATIVE: CASE EVENT DATE: 201606
